FAERS Safety Report 9804000 (Version 1)
Quarter: 2014Q1

REPORT INFORMATION
  Report Type: Spontaneous
  Country: FR (occurrence: None)
  Receive Date: 20140103
  Receipt Date: 20140103
  Transmission Date: 20141002
  Serious: Yes (Hospitalization)
  Sender: FDA-Public Use
  Company Number: SYM-2013-14388

PATIENT
  Age: 81 Year
  Sex: 0

DRUGS (1)
  1. MONO-TILDIEM [Suspect]
     Indication: HYPERTENSION
     Route: 048
     Dates: start: 20131121, end: 20131128

REACTIONS (2)
  - Vascular purpura [None]
  - Rash [None]
